FAERS Safety Report 8029689-5 (Version None)
Quarter: 2012Q1

REPORT INFORMATION
  Report Type: 
  Country: None (occurrence: None)
  Receive Date: 20120109
  Receipt Date: 20120104
  Transmission Date: 20120608
  Serious: Yes (Life-Threatening, Other)
  Sender: FDA-Public Use
  Company Number: GB-PFIZER INC-2011287368

PATIENT
  Age: 38 Year
  Sex: Male
  Weight: 97 kg

DRUGS (2)
  1. VARENICLINE TARTRATE [Suspect]
     Indication: SMOKING CESSATION THERAPY
     Dosage: 500 UG, UNK
     Route: 048
     Dates: start: 20101203, end: 20101201
  2. VARENICLINE TARTRATE [Suspect]
     Dosage: 1 MG, UNK
     Route: 048
     Dates: start: 20101201, end: 20101219

REACTIONS (10)
  - SELF INJURIOUS BEHAVIOUR [None]
  - ANXIETY [None]
  - DISINHIBITION [None]
  - ALCOHOL ABUSE [None]
  - DISTURBANCE IN ATTENTION [None]
  - AGITATION [None]
  - PSYCHOTIC DISORDER [None]
  - ABNORMAL BEHAVIOUR [None]
  - DEPRESSION [None]
  - IRRITABILITY [None]
